FAERS Safety Report 15197428 (Version 2)
Quarter: 2018Q3

REPORT INFORMATION
  Report Type: Spontaneous
  Country: US (occurrence: US)
  Receive Date: 20180725
  Receipt Date: 20180911
  Transmission Date: 20181010
  Serious: Yes (Hospitalization, Other)
  Sender: FDA-Public Use
  Company Number: US-IMPAX LABORATORIES, INC-2018-IPXL-02486

PATIENT
  Sex: Female
  Weight: 47 kg

DRUGS (2)
  1. RYTARY [Suspect]
     Active Substance: CARBIDOPA\LEVODOPA
     Dosage: 48.75/195 MG TWO CAPSULES THREE TIMES DAILY
     Route: 048
     Dates: start: 201806
  2. RYTARY [Suspect]
     Active Substance: CARBIDOPA\LEVODOPA
     Indication: PARKINSON^S DISEASE
     Dosage: 48.75/195 MG FOUR CAPSULES THREE TIMES DAILY
     Route: 048
     Dates: start: 2016, end: 201806

REACTIONS (7)
  - Muscle twitching [Unknown]
  - Insomnia [Not Recovered/Not Resolved]
  - Balance disorder [Unknown]
  - Weight decreased [Not Recovered/Not Resolved]
  - Hallucination, visual [Not Recovered/Not Resolved]
  - Gait disturbance [Unknown]
  - Therapeutic response shortened [Not Recovered/Not Resolved]

NARRATIVE: CASE EVENT DATE: 2017
